FAERS Safety Report 7814502-9 (Version None)
Quarter: 2011Q4

REPORT INFORMATION
  Report Type: 
  Country: None (occurrence: None)
  Receive Date: 20111014
  Receipt Date: 20111014
  Transmission Date: 20120403
  Serious: Yes (Other)
  Sender: FDA-Public Use
  Company Number: PHHO2009US02073

PATIENT
  Sex: Female
  Weight: 67 kg

DRUGS (3)
  1. GILENYA [Suspect]
     Indication: RELAPSING-REMITTING MULTIPLE SCLEROSIS
     Dosage: 0.5 MG, UNK
     Route: 048
     Dates: start: 20070131, end: 20090205
  2. PROVIGIL [Concomitant]
     Indication: FATIGUE
     Dosage: UNK
  3. COD-LIVER OIL [Concomitant]

REACTIONS (2)
  - BASAL CELL CARCINOMA [None]
  - SKIN NEOPLASM EXCISION [None]
